FAERS Safety Report 8955991 (Version 1)
Quarter: 2012Q4

REPORT INFORMATION
  Report Type: 
  Country: DE (occurrence: DE)
  Receive Date: 20121210
  Receipt Date: 20121210
  Transmission Date: 20130627
  Serious: Yes (Hospitalization, Other)
  Sender: FDA-Public Use
  Company Number: DE-ELI_LILLY_AND_COMPANY-DE201211008463

PATIENT
  Age: 71 Year
  Sex: Female

DRUGS (3)
  1. FORSTEO [Suspect]
     Indication: OSTEOPOROSIS
     Dosage: UNK, qd
     Route: 058
     Dates: start: 20120522
  2. CORTISONE [Concomitant]
     Indication: COLITIS ULCERATIVE
     Dosage: UNK, unknown
     Route: 065
  3. IRON [Concomitant]
     Dosage: UNK, unknown
     Route: 065

REACTIONS (3)
  - Cardiac discomfort [Recovered/Resolved]
  - Arrhythmia [Recovered/Resolved]
  - Hypertension [Recovered/Resolved]
